FAERS Safety Report 7751736-6 (Version None)
Quarter: 2011Q3

REPORT INFORMATION
  Report Type: 
  Country: None (occurrence: None)
  Receive Date: 20110915
  Receipt Date: 20110905
  Transmission Date: 20111222
  Serious: Yes (Hospitalization)
  Sender: FDA-Public Use
  Company Number: DE-BIOGENIDEC-2011BI033965

PATIENT
  Age: 47 Year
  Sex: Male
  Weight: 154 kg

DRUGS (2)
  1. AVONEX [Suspect]
     Indication: MULTIPLE SCLEROSIS
     Route: 030
     Dates: start: 20110501, end: 20110824
  2. AVONEX [Suspect]
     Route: 030
     Dates: start: 20110906

REACTIONS (2)
  - INFLUENZA [None]
  - BRONCHITIS [None]
